FAERS Safety Report 10488425 (Version 2)
Quarter: 2014Q4

REPORT INFORMATION
  Report Type: Spontaneous
  Country: GB (occurrence: None)
  Receive Date: 20140922
  Receipt Date: 20141112
  Transmission Date: 20150528
  Serious: Yes (Other)
  Sender: FDA-Public Use
  Company Number: BTG00144

PATIENT
  Age: 84 Year
  Sex: Female
  Weight: 69.5 kg

DRUGS (9)
  1. DIGOXIN (DIGOXIN) [Suspect]
     Active Substance: DIGOXIN
     Indication: PRODUCT USED FOR UNKNOWN INDICATION
  2. BUMETANIDE (BUMETANIDE) [Concomitant]
     Active Substance: BUMETANIDE
  3. ZOPICLONE (ZOPICLONE) [Concomitant]
     Active Substance: ZOPICLONE
  4. DOXYCYCLINE HYDROCHLORIDE [Concomitant]
     Active Substance: DOXYCYCLINE HYDROCHLORIDE
  5. DIGIFAB [Suspect]
     Active Substance: OVINE DIGOXIN IMMUNE FAB
     Indication: TOXICITY TO VARIOUS AGENTS
     Dosage: 160 MG (4 VIALS)
     Dates: start: 20140909
  6. SPIRONOLACTONE (SPIRONOLACTONE) [Concomitant]
     Active Substance: SPIRONOLACTONE
  7. RAMIPRIL (RAMIPRIL) [Concomitant]
     Active Substance: RAMIPRIL
  8. BISOPROLOL (BISOPROLOL FUMARATE) [Concomitant]
  9. DONEPEZIL (DONEPEZIL) [Concomitant]
     Active Substance: DONEPEZIL

REACTIONS (2)
  - Bradycardia [None]
  - Drug ineffective [None]
